FAERS Safety Report 8196743-7 (Version None)
Quarter: 2012Q1

REPORT INFORMATION
  Report Type: 
  Country: None (occurrence: None)
  Receive Date: 20120309
  Receipt Date: 20120306
  Transmission Date: 20120608
  Serious: Yes (Other)
  Sender: FDA-Public Use
  Company Number: PHHY2011NL111765

PATIENT
  Sex: Male

DRUGS (1)
  1. TOBI [Suspect]
     Indication: CYSTIC FIBROSIS
     Dosage: DAILY ADMINISTRATION OF TOBI FOR A MONTH, FOLLOWED BY A MONTH WITHOUT TOBI

REACTIONS (4)
  - DRUG INEFFECTIVE [None]
  - RENAL IMPAIRMENT [None]
  - RENAL FUNCTION TEST ABNORMAL [None]
  - BLOOD CREATININE INCREASED [None]
